FAERS Safety Report 11044103 (Version 1)
Quarter: 2015Q2

REPORT INFORMATION
  Report Type: Spontaneous
  Country: US (occurrence: None)
  Receive Date: 20150416
  Receipt Date: 20150416
  Transmission Date: 20150821
  Serious: Yes (Hospitalization)
  Sender: FDA-Public Use
  Company Number: None

PATIENT
  Age: 63 Year
  Sex: Male
  Weight: 116 kg

DRUGS (2)
  1. IFOSFAMIDE. [Suspect]
     Active Substance: IFOSFAMIDE
     Indication: LIPOSARCOMA
     Route: 042
     Dates: start: 20150329, end: 20150329
  2. IFOSFAMIDE. [Suspect]
     Active Substance: IFOSFAMIDE
     Indication: LIPOSARCOMA
     Route: 042
     Dates: start: 20150329, end: 20150329

REACTIONS (4)
  - Gait disturbance [None]
  - Neurotoxicity [None]
  - No reaction on previous exposure to drug [None]
  - Confusional state [None]

NARRATIVE: CASE EVENT DATE: 20150329
